FAERS Safety Report 7072033-0 (Version None)
Quarter: 2010Q4

REPORT INFORMATION
  Report Type: 
  Country: None (occurrence: None)
  Receive Date: 20101029
  Receipt Date: 20091124
  Transmission Date: 20110411
  Serious: No
  Sender: FDA-Public Use
  Company Number: A0826642A

PATIENT
  Age: 79 Year
  Sex: Female

DRUGS (9)
  1. ADVAIR DISKUS 100/50 [Suspect]
     Indication: CHRONIC OBSTRUCTIVE PULMONARY DISEASE
     Dosage: 1PUFF TWICE PER DAY
     Route: 055
     Dates: start: 20091123, end: 20091123
  2. FLUTICASONE PROPIONATE [Concomitant]
  3. ENALAPRIL MALEATE [Concomitant]
  4. ACIPHEX [Concomitant]
  5. ANTIHISTAMINE [Concomitant]
  6. ALOE VERA [Concomitant]
  7. ENZYME [Concomitant]
  8. ASCORBIC ACID [Concomitant]
  9. VITAMIN B [Concomitant]

REACTIONS (3)
  - EMOTIONAL DISTRESS [None]
  - PARAESTHESIA ORAL [None]
  - TONGUE DISCOLOURATION [None]
